FAERS Safety Report 4483961-4 (Version None)
Quarter: 2004Q4

REPORT INFORMATION
  Report Type: 
  Country: None (occurrence: None)
  Receive Date: 20041025
  Receipt Date: 20041019
  Transmission Date: 20050328
  Serious: Yes (Hospitalization)
  Sender: FDA-Public Use
  Company Number: US-JNJFOC-20040402275

PATIENT
  Age: 32 Year
  Sex: Female

DRUGS (14)
  1. ELMIRON [Suspect]
     Indication: CYSTITIS INTERSTITIAL
     Route: 049
  2. VICODIN [Concomitant]
  3. VICODIN [Concomitant]
  4. ROBAXIN [Concomitant]
  5. PYRIDIUM [Concomitant]
  6. METHADONE HCL [Concomitant]
  7. AMBIEN [Concomitant]
  8. DONITOL [Concomitant]
  9. DONITOL [Concomitant]
  10. DONITOL [Concomitant]
  11. XANAX [Concomitant]
  12. TRAZODONE HCL [Concomitant]
  13. ACID MEDICINE [Concomitant]
  14. OTHER MEDICATIONS [Concomitant]

REACTIONS (3)
  - GASTROINTESTINAL INFECTION [None]
  - PYREXIA [None]
  - SYNCOPE [None]
